FAERS Safety Report 9062131 (Version 1)
Quarter: 2013Q1

REPORT INFORMATION
  Report Type: Spontaneous
  Country: SE (occurrence: SE)
  Receive Date: 20130129
  Receipt Date: 20130129
  Transmission Date: 20140127
  Serious: Yes (Other)
  Sender: FDA-Public Use
  Company Number: SE-JNJFOC-20130107830

PATIENT
  Sex: Male

DRUGS (3)
  1. XEPLION [Suspect]
     Indication: SCHIZOPHRENIA
     Route: 030
     Dates: start: 20120123, end: 20120623
  2. CLOZAPINE [Concomitant]
     Route: 065
  3. AKINETON [Concomitant]
     Route: 065

REACTIONS (1)
  - Skin mass [Unknown]
